FAERS Safety Report 13592867 (Version 2)
Quarter: 2017Q2

REPORT INFORMATION
  Report Type: Spontaneous
  Country: US (occurrence: US)
  Receive Date: 20170530
  Receipt Date: 20170629
  Transmission Date: 20170830
  Serious: No
  Sender: FDA-Public Use
  Company Number: US-ASTRAZENECA-2017SE54315

PATIENT
  Sex: Female
  Weight: 61.2 kg

DRUGS (11)
  1. METFORMIN [Suspect]
     Active Substance: METFORMIN HYDROCHLORIDE
     Indication: DIABETES MELLITUS
     Dosage: NON-AZ PRODUCT; 10000 MG, TWO TIMES A DAY
     Route: 048
  2. BYDUREON [Suspect]
     Active Substance: EXENATIDE
     Indication: TYPE 2 DIABETES MELLITUS
     Route: 058
     Dates: start: 20170511
  3. CHLORTHALIDONE. [Concomitant]
     Active Substance: CHLORTHALIDONE
     Indication: BLOOD PRESSURE ABNORMAL
     Route: 048
  4. ASPIRIN. [Concomitant]
     Active Substance: ASPIRIN
     Indication: DIABETES MELLITUS
     Route: 048
  5. LANTUS [Concomitant]
     Active Substance: INSULIN GLARGINE
     Indication: DIABETES MELLITUS
     Dosage: TWO TIMES A DAY
  6. LISINOPRIL. [Suspect]
     Active Substance: LISINOPRIL
     Route: 048
  7. CALCIUM CARB/VIT D3 [Concomitant]
     Indication: BONE DISORDER
     Dosage: 600 MG/400 IU, DAILY
     Route: 048
  8. CENTRUM SILVER [Concomitant]
     Active Substance: MINERALS\VITAMINS
     Dosage: DAILY
     Route: 048
  9. ATORVASTATIN [Concomitant]
     Active Substance: ATORVASTATIN
     Indication: BLOOD CHOLESTEROL ABNORMAL
     Route: 048
  10. SEPTRA [Concomitant]
     Active Substance: SULFAMETHOXAZOLE\TRIMETHOPRIM
     Indication: INFECTION PROPHYLAXIS
     Route: 048
  11. VITAMINS NOS [Concomitant]
     Active Substance: VITAMINS
     Dosage: 2 TWO TIMES A DAY
     Route: 048

REACTIONS (4)
  - Abdominal discomfort [Unknown]
  - Wrong technique in product usage process [Unknown]
  - Glycosylated haemoglobin increased [Unknown]
  - Injection site reaction [Unknown]

NARRATIVE: CASE EVENT DATE: 20170518
